FAERS Safety Report 18763261 (Version 1)
Quarter: 2021Q1

REPORT INFORMATION
  Report Type: Spontaneous
  Country: US (occurrence: US)
  Receive Date: 20210120
  Receipt Date: 20210120
  Transmission Date: 20210419
  Serious: No
  Sender: FDA-Public Use
  Company Number: None

PATIENT
  Age: 60 Year
  Sex: Female
  Weight: 68.4 kg

DRUGS (11)
  1. ASPIRIN 81MG [Concomitant]
     Active Substance: ASPIRIN
  2. 5?HTP [Concomitant]
  3. CRANBERRY. [Concomitant]
     Active Substance: CRANBERRY
  4. VITAMIN C [Concomitant]
     Active Substance: ASCORBIC ACID
  5. VITAMIN B [Concomitant]
     Active Substance: VITAMIN B
  6. GENERIC BENADRYL [Concomitant]
     Active Substance: DIPHENHYDRAMINE HYDROCHLORIDE
  7. GENERIC ZYRTEC [Concomitant]
     Active Substance: CETIRIZINE HYDROCHLORIDE
  8. MELATONIN [Concomitant]
     Active Substance: MELATONIN
  9. CEFUROXIME 500 MG TAB NORT [Suspect]
     Active Substance: CEFUROXIME AXETIL
     Indication: URINARY TRACT INFECTION
     Route: 048
     Dates: start: 20210113, end: 20210117
  10. VITAMIN D3 [Concomitant]
     Active Substance: CHOLECALCIFEROL
  11. D?MANNOSE [Concomitant]

REACTIONS (1)
  - Diarrhoea [None]

NARRATIVE: CASE EVENT DATE: 20210118
